FAERS Safety Report 12256885 (Version 1)
Quarter: 2016Q2

REPORT INFORMATION
  Report Type: Spontaneous
  Country: US (occurrence: None)
  Receive Date: 20160411
  Receipt Date: 20160411
  Transmission Date: 20160815
  Serious: No
  Sender: FDA-Public Use
  Company Number: None

PATIENT
  Age: 77 Year
  Sex: Female
  Weight: 60.5 kg

DRUGS (6)
  1. RAMIPRIL, 2.5 MG [Suspect]
     Active Substance: RAMIPRIL
     Indication: HYPERTENSION
     Route: 048
     Dates: start: 20121031, end: 20160226
  2. OMEPRAZOLE. [Concomitant]
     Active Substance: OMEPRAZOLE
  3. METFORMIN [Concomitant]
     Active Substance: METFORMIN HYDROCHLORIDE
  4. RAMIPRIL, 2.5 MG [Suspect]
     Active Substance: RAMIPRIL
     Indication: DIABETES MELLITUS
     Route: 048
     Dates: start: 20121031, end: 20160226
  5. GLIMEPIRIDE. [Concomitant]
     Active Substance: GLIMEPIRIDE
  6. PRAVASTATIN [Concomitant]
     Active Substance: PRAVASTATIN\PRAVASTATIN SODIUM

REACTIONS (2)
  - Dysphonia [None]
  - Swelling face [None]

NARRATIVE: CASE EVENT DATE: 20160226
